FAERS Safety Report 6474166-6 (Version None)
Quarter: 2009Q4

REPORT INFORMATION
  Report Type: 
  Country: None (occurrence: None)
  Receive Date: 20091204
  Receipt Date: 20091120
  Transmission Date: 20100525
  Serious: Yes (Hospitalization, Other)
  Sender: FDA-Public Use
  Company Number: PHHY2009DE51886

PATIENT
  Age: 84 Year
  Sex: Male
  Weight: 57.4 kg

DRUGS (5)
  1. DIOVAN HCT [Suspect]
     Indication: HYPERTENSION
     Dosage: 1 DF, QD
     Route: 048
     Dates: start: 20070501
  2. PROPAFENONE [Suspect]
     Indication: ARRHYTHMIA
     Dosage: 150 MG, QD
     Route: 048
     Dates: start: 20050101, end: 20090504
  3. XIPAMIDE [Suspect]
     Indication: HYPERTENSION
     Dosage: 5 MG DAILY
     Route: 048
     Dates: start: 20080701, end: 20090502
  4. ASPIRIN [Concomitant]
     Indication: THROMBOSIS PROPHYLAXIS
     Dosage: UNK
     Route: 048
  5. LYRICA [Concomitant]
     Indication: EPILEPSY
     Dosage: 25 MG, BID
     Dates: start: 20070501

REACTIONS (8)
  - BLOOD SODIUM DECREASED [None]
  - EXTRASYSTOLES [None]
  - FALL [None]
  - HEART RATE DECREASED [None]
  - LOSS OF CONSCIOUSNESS [None]
  - NAUSEA [None]
  - SYNCOPE [None]
  - WOUND [None]
